FAERS Safety Report 16380758 (Version 1)
Quarter: 2019Q2

REPORT INFORMATION
  Report Type: Spontaneous
  Country: US (occurrence: US)
  Receive Date: 20190601
  Receipt Date: 20190601
  Transmission Date: 20190711
  Serious: No
  Sender: FDA-Public Use
  Company Number: US-JNJFOC-20190524250

PATIENT
  Sex: Female
  Weight: 68.04 kg

DRUGS (3)
  1. DURAGESIC [Suspect]
     Active Substance: FENTANYL
     Indication: POST-TRAUMATIC PAIN
     Route: 062
  2. DURAGESIC [Suspect]
     Active Substance: FENTANYL
     Indication: POST-TRAUMATIC PAIN
     Route: 062
  3. DURAGESIC [Suspect]
     Active Substance: FENTANYL
     Indication: POST-TRAUMATIC PAIN
     Route: 062

REACTIONS (3)
  - Inappropriate schedule of product administration [Unknown]
  - Product dose omission [Unknown]
  - General physical health deterioration [Not Recovered/Not Resolved]
